FAERS Safety Report 10239339 (Version 1)
Quarter: 2014Q2

REPORT INFORMATION
  Report Type: Spontaneous
  Country: GB (occurrence: GB)
  Receive Date: 20140616
  Receipt Date: 20140616
  Transmission Date: 20141212
  Serious: Yes (Other)
  Sender: FDA-Public Use
  Company Number: GB-PFIZER INC-2014161013

PATIENT
  Age: 49 Year
  Sex: Female
  Weight: 56 kg

DRUGS (17)
  1. DOXYCYCLINE MONOHYDRATE [Suspect]
     Indication: LOWER RESPIRATORY TRACT INFECTION
     Dosage: 2 DF, UNK, 2 TO BE TAKEN ON THE FIRST DAY, THE 1 TO BE TAKEN DAILY.
     Route: 048
     Dates: start: 20140529, end: 20140529
  2. AMLODIPINE [Concomitant]
     Dosage: UNK
  3. ASPIRIN [Concomitant]
     Dosage: UNK
  4. AZATHIOPRINE [Concomitant]
     Dosage: UNK
  5. CHOLECALCIFEROL [Concomitant]
     Dosage: UNK
  6. FUROSEMIDE [Concomitant]
     Dosage: UNK
  7. GLICLAZIDE [Concomitant]
     Dosage: UNK
  8. GTN [Concomitant]
     Dosage: UNK
  9. LANSOPRAZOLE [Concomitant]
     Dosage: UNK
  10. MONOMIL XL [Concomitant]
     Dosage: UNK
  11. NICORANDIL [Concomitant]
     Dosage: UNK
  12. PARACETAMOL [Concomitant]
     Dosage: UNK
  13. PRAVASTATIN [Concomitant]
     Dosage: UNK
  14. PREDNISOLONE [Concomitant]
     Dosage: UNK
  15. SOTALOL [Concomitant]
     Dosage: UNK
  16. SYSTANE [Concomitant]
     Dosage: UNK
  17. TACROLIMUS [Concomitant]
     Dosage: UNK

REACTIONS (6)
  - Malaise [Recovered/Resolved]
  - Vomiting [Recovered/Resolved]
  - Abdominal pain upper [Unknown]
  - Cholelithiasis [Unknown]
  - Condition aggravated [Unknown]
  - Hypoaesthesia oral [Recovered/Resolved]
